FAERS Safety Report 17922159 (Version 1)
Quarter: 2020Q2

REPORT INFORMATION
  Report Type: Spontaneous
  Country: CA (occurrence: CA)
  Receive Date: 20200622
  Receipt Date: 20200622
  Transmission Date: 20200714
  Serious: Yes (Death, Other)
  Sender: FDA-Public Use
  Company Number: CA-ACCORD-186064

PATIENT
  Age: 36 Year
  Sex: Male

DRUGS (4)
  1. YTTRIUM (90 Y)/YTTRIUM (90 Y) CHLORIDE [Suspect]
     Active Substance: YTTRIUM CHLORIDE Y-90
     Indication: RADIOEMBOLISATION
  2. AFINITOR [Suspect]
     Active Substance: EVEROLIMUS
     Indication: PANCREATIC NEUROENDOCRINE TUMOUR METASTATIC
  3. CAPECITABINE. [Suspect]
     Active Substance: CAPECITABINE
     Indication: PANCREATIC NEUROENDOCRINE TUMOUR METASTATIC
     Route: 048
  4. TEMOZOLOMIDE. [Suspect]
     Active Substance: TEMOZOLOMIDE
     Indication: PANCREATIC NEUROENDOCRINE TUMOUR METASTATIC

REACTIONS (3)
  - Metastases to liver [Fatal]
  - Malignant neoplasm progression [Fatal]
  - Pancreatic neuroendocrine tumour metastatic [Fatal]
